FAERS Safety Report 9410235 (Version 4)
Quarter: 2014Q1

REPORT INFORMATION
  Report Type: Spontaneous
  Country: US (occurrence: US)
  Receive Date: 20130719
  Receipt Date: 20140321
  Transmission Date: 20141002
  Serious: Yes (Hospitalization)
  Sender: FDA-Public Use
  Company Number: US-B.I. PHARMACEUTICALS,INC./RIDGEFIELD-2013-BI-20700BP

PATIENT
  Age: 71 Year
  Sex: Female
  Weight: 70.31 kg

DRUGS (16)
  1. PRADAXA [Suspect]
     Indication: ATRIAL FIBRILLATION
     Dosage: 150 MG
     Route: 048
     Dates: start: 20110709, end: 20120117
  2. AMBIEN [Concomitant]
     Dosage: 50 MG
     Route: 048
     Dates: start: 201105
  3. COZAAR [Concomitant]
     Dosage: 50 MG
     Route: 048
  4. DIAZEPAM [Concomitant]
     Route: 065
  5. NORCO [Concomitant]
     Route: 065
  6. KEFLEX [Concomitant]
     Route: 065
  7. LASIX [Concomitant]
     Route: 048
     Dates: start: 200812
  8. LOPRESSOR [Concomitant]
     Dosage: 100 MG
     Route: 048
     Dates: start: 201109, end: 201204
  9. VALSARTAN [Concomitant]
     Route: 065
  10. GLUCOTROL [Concomitant]
     Dosage: 10 MG
     Route: 048
     Dates: start: 201105
  11. ALBUTEROL [Concomitant]
     Route: 065
  12. BABY ASPIRIN [Concomitant]
     Dosage: 81 MG
     Route: 048
     Dates: start: 201107
  13. LIPITOR [Concomitant]
     Route: 048
  14. K-DUR [Concomitant]
     Dosage: 20 MEQ
     Route: 048
  15. TYLENOL PM EXTRA STRENGHT [Concomitant]
     Route: 048
  16. FLONASE [Concomitant]
     Route: 065

REACTIONS (5)
  - Gastrointestinal haemorrhage [Unknown]
  - Shock haemorrhagic [Unknown]
  - Haemorrhagic anaemia [Unknown]
  - Coagulopathy [Unknown]
  - Hypovolaemic shock [Unknown]
